FAERS Safety Report 15795473 (Version 1)
Quarter: 2019Q1

REPORT INFORMATION
  Report Type: Spontaneous
  Country: US (occurrence: US)
  Receive Date: 20190107
  Receipt Date: 20190107
  Transmission Date: 20190417
  Serious: Yes (Other)
  Sender: FDA-Public Use
  Company Number: PHEH2018US055034

PATIENT

DRUGS (9)
  1. DOCETAXEL. [Suspect]
     Active Substance: DOCETAXEL
     Indication: BREAST CANCER
     Dosage: RECEIVED 6 CYCLES
     Route: 065
     Dates: start: 20160211, end: 20160526
  2. PERTUZUMAB. [Suspect]
     Active Substance: PERTUZUMAB
     Indication: BREAST CANCER
     Dosage: 6 DF, CYCLIC
     Route: 065
     Dates: start: 20160211, end: 20160526
  3. FASLODEX [Suspect]
     Active Substance: FULVESTRANT
     Indication: BREAST CANCER
     Dosage: ONCE MONTHLY (AFTER 2 EVERY 2 WEEK LOADING DOSES)
     Route: 065
     Dates: start: 20161025
  4. FEMARA [Suspect]
     Active Substance: LETROZOLE
     Indication: BREAST CANCER
     Dosage: UNK
     Route: 065
     Dates: start: 20140421
  5. TAXOL [Suspect]
     Active Substance: PACLITAXEL
     Indication: BREAST CANCER
     Dosage: 3 DF, CYCLIC
     Route: 065
     Dates: start: 20170224
  6. HERCEPTIN [Suspect]
     Active Substance: TRASTUZUMAB
     Dosage: UNK, QW3
     Route: 065
     Dates: start: 20160616
  7. FASLODEX [Suspect]
     Active Substance: FULVESTRANT
     Dosage: UNK
     Route: 065
     Dates: start: 20170301
  8. HERCEPTIN [Suspect]
     Active Substance: TRASTUZUMAB
     Indication: BREAST CANCER
     Dosage: 6 DF, CYCLIC
     Route: 065
     Dates: start: 20160211, end: 20160526
  9. PALBOCICLIB [Suspect]
     Active Substance: PALBOCICLIB
     Indication: BREAST CANCER
     Dosage: 75 MG, UNK
     Route: 065
     Dates: start: 20160410

REACTIONS (12)
  - Metastases to bone [Unknown]
  - Diarrhoea [Unknown]
  - Spinal compression fracture [Unknown]
  - Secretion discharge [Unknown]
  - Pathological fracture [Unknown]
  - Breast cancer [Unknown]
  - Metastases to spine [Unknown]
  - Back pain [Unknown]
  - Fatigue [Unknown]
  - Neutropenia [Unknown]
  - Malignant neoplasm progression [Unknown]
  - Urinary tract infection [Unknown]

NARRATIVE: CASE EVENT DATE: 20150922
